FAERS Safety Report 11853138 (Version 1)
Quarter: 2015Q4

REPORT INFORMATION
  Report Type: Spontaneous
  Country: US (occurrence: US)
  Receive Date: 20151218
  Receipt Date: 20151218
  Transmission Date: 20160305
  Serious: Yes (Hospitalization)
  Sender: FDA-Public Use
  Company Number: US-AKRIMAX-TIR-2015-0095

PATIENT
  Age: 32 Year
  Sex: Female

DRUGS (3)
  1. TIROSINT [Suspect]
     Active Substance: LEVOTHYROXINE SODIUM
     Indication: HYPOTHYROIDISM
     Dosage: ONE 100MCG CAPSULE + ONE 150MCG DAILY
     Route: 048
     Dates: end: 201504
  2. TIROSINT [Suspect]
     Active Substance: LEVOTHYROXINE SODIUM
     Indication: HYPOTHYROIDISM
     Route: 048
     Dates: end: 201508
  3. TIROSINT [Suspect]
     Active Substance: LEVOTHYROXINE SODIUM
     Indication: HYPOTHYROIDISM
     Dosage: TWO 137MCG CAPSULES DAILY
     Route: 048
     Dates: start: 2014

REACTIONS (3)
  - Hypothyroidism [Unknown]
  - Hypothyroidism [Unknown]
  - Nervousness [Unknown]

NARRATIVE: CASE EVENT DATE: 201504
